FAERS Safety Report 4623691-9 (Version None)
Quarter: 2005Q2

REPORT INFORMATION
  Report Type: 
  Country: None (occurrence: None)
  Receive Date: 20050325
  Receipt Date: 20050106
  Transmission Date: 20051028
  Serious: No
  Sender: FDA-Public Use
  Company Number: USA041081795

PATIENT
  Age: 87 Year
  Sex: Female

DRUGS (13)
  1. FORTEO [Suspect]
     Indication: OSTEOPOROSIS
     Dosage: 20 UG DAY
     Dates: start: 20041019
  2. CALCIUM WITH VITAMIN D [Concomitant]
  3. ACTONEL [Concomitant]
  4. CELEXA [Concomitant]
  5. DETROL LA [Concomitant]
  6. LIPITOR [Concomitant]
  7. TOPROL-XL [Concomitant]
  8. PROTONIX [Concomitant]
  9. PLAVIX [Concomitant]
  10. PLETAL [Concomitant]
  11. COZAAR [Concomitant]
  12. AMIODARONE HCL [Concomitant]
  13. NORVASC [Concomitant]

REACTIONS (9)
  - ACCIDENTAL NEEDLE STICK [None]
  - ACCIDENTAL OVERDOSE [None]
  - CONSTIPATION [None]
  - DIARRHOEA [None]
  - FEAR [None]
  - INJECTION SITE PAIN [None]
  - MEDICATION ERROR [None]
  - MUSCLE SPASMS [None]
  - NAUSEA [None]
